FAERS Safety Report 10288097 (Version 2)
Quarter: 2014Q3

REPORT INFORMATION
  Report Type: Spontaneous
  Country: US (occurrence: US)
  Receive Date: 20140709
  Receipt Date: 20140917
  Transmission Date: 20150326
  Serious: Yes (Hospitalization)
  Sender: FDA-Public Use
  Company Number: US-BAYER-2014-102855

PATIENT
  Age: 21 Year
  Sex: Female
  Weight: 43.99 kg

DRUGS (1)
  1. MIRENA [Suspect]
     Active Substance: LEVONORGESTREL
     Indication: CONTRACEPTION
     Dosage: 20 MCG/24HR, CONT
     Route: 015
     Dates: start: 20100811, end: 20120807

REACTIONS (4)
  - Uterine perforation [None]
  - Emotional distress [None]
  - Pelvic pain [None]
  - Injury [None]

NARRATIVE: CASE EVENT DATE: 201208
